FAERS Safety Report 13048278 (Version 2)
Quarter: 2017Q1

REPORT INFORMATION
  Report Type: Report from Study
  Country: US (occurrence: US)
  Receive Date: 20161220
  Receipt Date: 20170125
  Transmission Date: 20170428
  Serious: Yes (Death, Other)
  Sender: FDA-Public Use
  Company Number: US-ASTRAZENECA-2016SF28959

PATIENT
  Age: 29564 Day
  Sex: Male

DRUGS (1)
  1. LYNPARZA [Suspect]
     Active Substance: OLAPARIB
     Indication: PROSTATE CANCER
     Route: 048
     Dates: start: 20161123

REACTIONS (16)
  - Death [Fatal]
  - Abdominal pain upper [Not Recovered/Not Resolved]
  - Pleural effusion [Unknown]
  - Diarrhoea [Not Recovered/Not Resolved]
  - Pulmonary mass [Unknown]
  - Bronchitis [Unknown]
  - Emphysema [Unknown]
  - Renal cyst [Unknown]
  - Gynaecomastia [Unknown]
  - Product use issue [Unknown]
  - Fatigue [Not Recovered/Not Resolved]
  - Hepatic cirrhosis [Unknown]
  - Metastases to bone [Unknown]
  - Spinal compression fracture [Unknown]
  - Off label use [Unknown]
  - Pulmonary fibrosis [Unknown]

NARRATIVE: CASE EVENT DATE: 20161212
